FAERS Safety Report 5526474-0 (Version None)
Quarter: 2007Q4

REPORT INFORMATION
  Report Type: 
  Country: None (occurrence: None)
  Receive Date: 20071123
  Receipt Date: 20070108
  Transmission Date: 20080405
  Serious: Yes (Hospitalization)
  Sender: FDA-Public Use
  Company Number: US-JNJFOC-20061203125

PATIENT
  Age: 71 Year
  Sex: Male
  Weight: 92.9874 kg

DRUGS (2)
  1. LEVAQUIN [Suspect]
     Indication: TRANSURETHRAL PROSTATECTOMY
     Dosage: 500 MG, IN 1 DAY, INTRAVENOUS
     Route: 042
     Dates: start: 20061110, end: 20061114
  2. LEVAQUIN [Suspect]
     Indication: TRANSURETHRAL PROSTATECTOMY
     Dosage: ORAL
     Route: 048
     Dates: start: 20061116, end: 20061117

REACTIONS (1)
  - MYALGIA [None]
